FAERS Safety Report 6411219-2 (Version None)
Quarter: 2009Q4

REPORT INFORMATION
  Report Type: 
  Country: None (occurrence: None)
  Receive Date: 20091022
  Receipt Date: 20091014
  Transmission Date: 20100525
  Serious: Yes (Other)
  Sender: FDA-Public Use
  Company Number: CA-JNJCH-2009027338

PATIENT
  Sex: Female

DRUGS (1)
  1. PSEUDOEPHEDRINE AND DEXTROMETHORPHAN AND GUAIFENESIN [Suspect]
     Indication: DRUG USE FOR UNKNOWN INDICATION
     Dosage: TEXT:TWO TABLESPOON UNSPECIFIED
     Route: 048
     Dates: start: 20091012, end: 20091013

REACTIONS (4)
  - COLD SWEAT [None]
  - DIZZINESS [None]
  - GAIT DISTURBANCE [None]
  - VOMITING [None]
